FAERS Safety Report 18416846 (Version 1)
Quarter: 2020Q4

REPORT INFORMATION
  Report Type: Report from Study
  Country: ES (occurrence: ES)
  Receive Date: 20201022
  Receipt Date: 20201022
  Transmission Date: 20210114
  Serious: Yes (Other)
  Sender: FDA-Public Use
  Company Number: ES-JNJFOC-20201036176

PATIENT

DRUGS (2)
  1. REMICADE [Suspect]
     Active Substance: INFLIXIMAB
     Indication: BEHCET^S SYNDROME
     Dosage: 3-5 MG/KG AT WEEKS 0, 2 AND 6, AND THEN A MAINTENANCE DOSE EVERY 4-8 WEEKS
     Route: 042
  2. REMICADE [Suspect]
     Active Substance: INFLIXIMAB
     Indication: UVEITIS

REACTIONS (3)
  - Product use in unapproved indication [Unknown]
  - Off label use [Unknown]
  - Mycobacterium avium complex infection [Unknown]
